FAERS Safety Report 8935821 (Version 1)
Quarter: 2012Q4

REPORT INFORMATION
  Report Type: 
  Country: US (occurrence: US)
  Receive Date: 20121130
  Receipt Date: 20121130
  Transmission Date: 20130627
  Serious: No
  Sender: FDA-Public Use
  Company Number: US-009507513-1211USA011951

PATIENT
  Age: 58 Year
  Sex: Female

DRUGS (8)
  1. PEGINTRON [Suspect]
     Indication: HEPATITIS B
     Dosage: 80MCG/0.5MCG, qw
     Dates: start: 201208
  2. REBETOL [Suspect]
  3. LISINOPRIL [Concomitant]
  4. SOMA [Concomitant]
  5. LEVOTHYROXINE SODIUM [Concomitant]
  6. HYDROCODONE [Concomitant]
  7. LORTAB [Concomitant]
  8. CITALOPRAM [Concomitant]

REACTIONS (4)
  - Anxiety [Recovering/Resolving]
  - Dyspnoea [Recovering/Resolving]
  - Anxiety [Unknown]
  - Dyspnoea [Unknown]
